FAERS Safety Report 25601289 (Version 2)
Quarter: 2025Q3

REPORT INFORMATION
  Report Type: Spontaneous
  Country: EU (occurrence: EU)
  Receive Date: 20250724
  Receipt Date: 20250812
  Transmission Date: 20251021
  Serious: Yes (Hospitalization)
  Sender: TEVA
  Company Number: EU-TEVA-VS-3353377

PATIENT
  Age: 31 Year
  Sex: Female

DRUGS (2)
  1. CYCLOSPORINE [Suspect]
     Active Substance: CYCLOSPORINE
     Indication: Vogt-Koyanagi-Harada disease
     Route: 065
  2. PREDNISOLONE [Suspect]
     Active Substance: PREDNISOLONE
     Indication: Vogt-Koyanagi-Harada disease
     Route: 065

REACTIONS (5)
  - Staphylococcal infection [Recovered/Resolved]
  - Muscle abscess [Recovered/Resolved]
  - Axillary nerve injury [Recovered/Resolved]
  - Paralysis [Recovered/Resolved]
  - Septic arthritis staphylococcal [Recovered/Resolved]
